FAERS Safety Report 14937190 (Version 1)
Quarter: 2018Q2

REPORT INFORMATION
  Report Type: Spontaneous
  Country: US (occurrence: US)
  Receive Date: 20180525
  Receipt Date: 20180525
  Transmission Date: 20180711
  Serious: Yes (Other)
  Sender: FDA-Public Use
  Company Number: US-ROCHE-2129306

PATIENT
  Sex: Female

DRUGS (1)
  1. RITUXAN [Suspect]
     Active Substance: RITUXIMAB
     Indication: LYMPHOMA
     Dosage: ONGOING: NO
     Route: 065
     Dates: start: 2012, end: 2016

REACTIONS (2)
  - Breast cancer [Unknown]
  - Lethargy [Unknown]

NARRATIVE: CASE EVENT DATE: 201612
